FAERS Safety Report 21385068 (Version 6)
Quarter: 2022Q4

REPORT INFORMATION
  Report Type: Report from Study
  Country: US (occurrence: US)
  Receive Date: 20220928
  Receipt Date: 20221226
  Transmission Date: 20230112
  Serious: No
  Sender: FDA-Public Use
  Company Number: US-NOVARTISTESTPH-NVSC2022US219006

PATIENT
  Age: 68 Year
  Sex: Male

DRUGS (3)
  1. ENTRESTO [Suspect]
     Active Substance: SACUBITRIL\VALSARTAN
     Indication: Product used for unknown indication
     Dosage: 1 DOSAGE FORM, (49/51 MG), BID
     Route: 048
     Dates: start: 202009
  2. ENTRESTO [Suspect]
     Active Substance: SACUBITRIL\VALSARTAN
     Dosage: 1.5 DOSAGE FORM, BID (49/51MG)
     Route: 065
     Dates: start: 202205, end: 202209
  3. ENTRESTO [Suspect]
     Active Substance: SACUBITRIL\VALSARTAN
     Dosage: 1 DOSAGE FORM, BID (49/51MG)
     Route: 048

REACTIONS (8)
  - Memory impairment [Unknown]
  - Weight decreased [Unknown]
  - Sleep apnoea syndrome [Unknown]
  - Asthenia [Unknown]
  - Blood glucose abnormal [Unknown]
  - Fatigue [Unknown]
  - Lower respiratory tract infection [Unknown]
  - Wrong technique in product usage process [Recovered/Resolved]

NARRATIVE: CASE EVENT DATE: 20200901
